FAERS Safety Report 13057484 (Version 1)
Quarter: 2016Q4

REPORT INFORMATION
  Report Type: Spontaneous
  Country: US (occurrence: US)
  Receive Date: 20161222
  Receipt Date: 20161222
  Transmission Date: 20170207
  Serious: Yes (Hospitalization)
  Sender: FDA-Public Use
  Company Number: None

PATIENT
  Age: 65 Year
  Sex: Female

DRUGS (7)
  1. SIMVASTATIN. [Concomitant]
     Active Substance: SIMVASTATIN
  2. XELJANZ [Suspect]
     Active Substance: TOFACITINIB CITRATE
     Indication: RHEUMATOID ARTHRITIS
     Route: 048
     Dates: start: 201306
  3. METHOTREXATE. [Concomitant]
     Active Substance: METHOTREXATE
  4. FOLIC ACID. [Concomitant]
     Active Substance: FOLIC ACID
  5. INDOMETHACIN. [Concomitant]
     Active Substance: INDOMETHACIN
  6. LISINOPRIL. [Concomitant]
     Active Substance: LISINOPRIL
  7. IRON [Concomitant]
     Active Substance: IRON

REACTIONS (5)
  - Post procedural complication [None]
  - Therapy cessation [None]
  - Musculoskeletal stiffness [None]
  - Condition aggravated [None]
  - Hip surgery [None]

NARRATIVE: CASE EVENT DATE: 20161206
